FAERS Safety Report 6622723-6 (Version None)
Quarter: 2010Q1

REPORT INFORMATION
  Report Type: 
  Country: None (occurrence: None)
  Receive Date: 20100310
  Receipt Date: 20100302
  Transmission Date: 20100710
  Serious: Yes (Disabling)
  Sender: FDA-Public Use
  Company Number: BR-BAYER-201012012LA

PATIENT
  Sex: Female

DRUGS (1)
  1. MIRENA [Suspect]
     Indication: DRUG USE FOR UNKNOWN INDICATION
     Dosage: FREQUENCY: CONTINUOUS
     Route: 015
     Dates: start: 20090801

REACTIONS (6)
  - DEPRESSED MOOD [None]
  - DYSSTASIA [None]
  - FLUID RETENTION [None]
  - PAIN IN EXTREMITY [None]
  - SWELLING [None]
  - WEIGHT INCREASED [None]
